FAERS Safety Report 7979119-4 (Version None)
Quarter: 2011Q4

REPORT INFORMATION
  Report Type: 
  Country: None (occurrence: None)
  Receive Date: 20111214
  Receipt Date: 20110526
  Transmission Date: 20120403
  Serious: Yes (Hospitalization)
  Sender: FDA-Public Use
  Company Number: US-BAYER-201019735NA

PATIENT
  Age: 16 Year
  Sex: Female
  Weight: 117.91 kg

DRUGS (18)
  1. ETODOLAC [Concomitant]
  2. DROSPIRENONE AND ETHINYL ESTRADIOL [Suspect]
     Indication: PREMENSTRUAL SYNDROME
  3. IMITREX [Concomitant]
     Indication: MIGRAINE
     Dosage: 100 MG, UNK
     Route: 048
  4. NAPROXEN [Concomitant]
     Dosage: 375 MG, UNK
     Route: 048
  5. ALDOSTERONE ANTAGONISTS [Concomitant]
  6. FISH OIL [Concomitant]
     Route: 048
  7. NSAID'S [Concomitant]
  8. SKELAXIN [Concomitant]
  9. YASMIN [Suspect]
     Indication: PREMENSTRUAL SYNDROME
  10. METFORMIN HCL [Concomitant]
     Indication: TYPE 2 DIABETES MELLITUS
     Dosage: 500 MG, BID
     Route: 048
  11. YAZ [Suspect]
     Indication: PREMENSTRUAL SYNDROME
  12. DROSPIRENONE AND ETHINYL ESTRADIOL [Suspect]
     Indication: ACNE
  13. LEVOXYL [Concomitant]
     Indication: HYPERLIPIDAEMIA
     Dosage: 50 UNK, UNK
  14. YAZ [Suspect]
     Indication: ACNE
     Route: 048
  15. YASMIN [Suspect]
     Indication: ACNE
     Route: 048
  16. IBUPROFEN [Concomitant]
     Dosage: 600 MG, UNK
     Route: 048
  17. COVERA-HS [Concomitant]
     Indication: MIGRAINE
     Route: 048
  18. DICYCLOMINE [Concomitant]
     Indication: GASTROINTESTINAL DISORDER

REACTIONS (12)
  - CHOLECYSTECTOMY [None]
  - MENORRHAGIA [None]
  - DYSPEPSIA [None]
  - CHOLECYSTITIS CHRONIC [None]
  - EATING DISORDER [None]
  - OVARIAN CYST [None]
  - DYSMENORRHOEA [None]
  - HYPOTHYROIDISM [None]
  - VOMITING [None]
  - HEADACHE [None]
  - TYPE 2 DIABETES MELLITUS [None]
  - THYROID DISORDER [None]
